FAERS Safety Report 5215674-5 (Version None)
Quarter: 2007Q1

REPORT INFORMATION
  Report Type: 
  Country: None (occurrence: None)
  Receive Date: 20070123
  Receipt Date: 20070112
  Transmission Date: 20070707
  Serious: Yes (Hospitalization)
  Sender: FDA-Public Use
  Company Number: FR-AVENTIS-200613607FR

PATIENT
  Age: 52 Year
  Sex: Male
  Weight: 78 kg

DRUGS (3)
  1. KETEK [Suspect]
     Indication: SINUSITIS
     Route: 048
     Dates: start: 20061002, end: 20061003
  2. EFFERALGAN                         /00020001/ [Suspect]
     Route: 048
     Dates: start: 20061003, end: 20061003
  3. AUGMENTIN [Concomitant]
     Indication: SINUSITIS
     Dates: start: 20061004

REACTIONS (15)
  - ANOREXIA [None]
  - ASTHENIA [None]
  - CHILLS [None]
  - CHROMATURIA [None]
  - CYANOSIS [None]
  - CYTOLYTIC HEPATITIS [None]
  - HEADACHE [None]
  - HEPATIC PAIN [None]
  - HYPOTENSION [None]
  - MALAISE [None]
  - MYALGIA [None]
  - NAUSEA [None]
  - PYREXIA [None]
  - TACHYCARDIA [None]
  - WEIGHT DECREASED [None]
